FAERS Safety Report 13904859 (Version 1)
Quarter: 2017Q3

REPORT INFORMATION
  Report Type: Spontaneous
  Country: US (occurrence: US)
  Receive Date: 20170824
  Receipt Date: 20170824
  Transmission Date: 20171127
  Serious: Yes (Other)
  Sender: FDA-Public Use
  Company Number: None

PATIENT
  Age: 45 Year
  Sex: Female
  Weight: 76.5 kg

DRUGS (2)
  1. OMEPRAZONE [Concomitant]
  2. BUPRENORPHINE/NALOXONE [Suspect]
     Active Substance: BUPRENORPHINE\NALOXONE
     Indication: DRUG USE DISORDER
     Route: 060
     Dates: start: 20170801, end: 20170815

REACTIONS (3)
  - Vomiting [None]
  - Drug effect incomplete [None]
  - Nausea [None]

NARRATIVE: CASE EVENT DATE: 20170801
